FAERS Safety Report 7181519-X (Version None)
Quarter: 2010Q4

REPORT INFORMATION
  Report Type: 
  Country: None (occurrence: None)
  Receive Date: 20101221
  Receipt Date: 20100426
  Transmission Date: 20110411
  Serious: No
  Sender: FDA-Public Use
  Company Number: US-AMGEN-KDL408560

PATIENT

DRUGS (17)
  1. ENBREL [Suspect]
     Indication: PRODUCT USED FOR UNKNOWN INDICATION
     Dosage: 50 MG, QWK
     Route: 058
  2. INSULIN LISPRO [Concomitant]
     Dosage: 100 ML, UNK
  3. MELOXICAM [Concomitant]
     Dosage: 15 MG, UNK
  4. INSULIN GLARGINE [Concomitant]
     Dosage: 100 ML, UNK
  5. LEFLUNOMIDE [Concomitant]
     Dosage: 20 MG, UNK
  6. TRAZODONE HCL [Concomitant]
     Dosage: 100 MG, UNK
  7. NEFAZODONE HCL [Concomitant]
     Dosage: 200 MG, UNK
  8. HYDROXYCHLOROQUINE [Concomitant]
     Dosage: 200 MG, UNK
  9. FOLIC ACID [Concomitant]
     Dosage: 1 MG, UNK
  10. ESOMEPRAZOLE MAGNESIUM [Concomitant]
     Dosage: 40 MG, UNK
  11. ROSUVASTATIN CALCIUM [Concomitant]
     Dosage: 10 MG, UNK
  12. DEXTROPROPOXYPHENE [Concomitant]
     Dosage: 650 MG, UNK
  13. VITAMIN B-COMPLEX [Concomitant]
     Dosage: UNK UNK, UNK
  14. MSM [Concomitant]
     Dosage: 1000 MG, UNK
  15. ERGOCALCIFEROL [Concomitant]
     Dosage: 1000 IU, UNK
  16. CONCERTA [Concomitant]
     Dosage: 36 MG, UNK
  17. CHONDROITIN [Concomitant]
     Dosage: UNK UNK, UNK

REACTIONS (4)
  - DIARRHOEA [None]
  - INJECTION SITE ERYTHEMA [None]
  - INJECTION SITE RASH [None]
  - INJECTION SITE REACTION [None]
